FAERS Safety Report 8918966 (Version 1)
Quarter: 2012Q4

REPORT INFORMATION
  Report Type: 
  Country: US (occurrence: US)
  Receive Date: 20121121
  Receipt Date: 20121121
  Transmission Date: 20130627
  Serious: Yes (Hospitalization, Other)
  Sender: FDA-Public Use
  Company Number: US-GENZYME-MOZO-1000781

PATIENT
  Age: 60 Year
  Sex: Female
  Weight: 166.5 kg

DRUGS (15)
  1. MOZOBIL [Suspect]
     Indication: MYELODYSPLASTIC SYNDROME
     Dosage: 35000 mcg, UNK; day: 1-5
     Route: 065
     Dates: start: 20120507, end: 20121019
  2. G-CSF [Suspect]
     Indication: MYELODYSPLASTIC SYNDROME
     Dosage: 400 mcg, UNK; day: 1-5
     Route: 065
     Dates: start: 20120507, end: 20121010
  3. VIDAZA [Suspect]
     Indication: MYELODYSPLASTIC SYNDROME
     Dosage: 143 mg, UNK; day 1-5
     Route: 065
     Dates: start: 20120507, end: 20121019
  4. ALBUTEROL [Concomitant]
     Indication: PRODUCT USED FOR UNKNOWN INDICATION
     Dosage: UNK
     Route: 065
  5. ALPRAZOLAM [Concomitant]
     Indication: PRODUCT USED FOR UNKNOWN INDICATION
     Dosage: UNK
     Route: 065
  6. CETRIZINE [Concomitant]
     Indication: PRODUCT USED FOR UNKNOWN INDICATION
     Dosage: 10 mg, UNK
     Route: 048
  7. CYCLOBENZAPRINE [Concomitant]
     Indication: PRODUCT USED FOR UNKNOWN INDICATION
     Dosage: 10 mg, UNK
     Route: 048
  8. EFFEXOR-XR [Concomitant]
     Indication: PRODUCT USED FOR UNKNOWN INDICATION
     Dosage: 75 mg, UNK; extended release 24 hrs
     Route: 048
  9. FENTANYL [Concomitant]
     Indication: PRODUCT USED FOR UNKNOWN INDICATION
     Dosage: 50 mcg/hr, UNK
     Route: 065
  10. HYDROXYZINE PAMOATE [Concomitant]
     Indication: ANXIETY
     Dosage: 25 mg, UNK; 1-2 capsules every 6hrs as needed
     Route: 048
  11. NASONEX [Concomitant]
     Indication: PRODUCT USED FOR UNKNOWN INDICATION
     Dosage: UNK
     Route: 065
  12. OMEPRAZOLE [Concomitant]
     Indication: PRODUCT USED FOR UNKNOWN INDICATION
     Dosage: 20 mg, UNK
     Route: 048
  13. OXYCODONE ACETAMINOPHEN [Concomitant]
     Indication: PRODUCT USED FOR UNKNOWN INDICATION
     Dosage: 10-325 mg, UNK
     Route: 048
  14. RANITIDINE HYDROCHLORIDE [Concomitant]
     Indication: PRODUCT USED FOR UNKNOWN INDICATION
     Dosage: 150 mg, UNK
     Route: 048
  15. PROCHLORPERAZINE MALEATE [Concomitant]
     Indication: NAUSEA
     Dosage: 10 mg, qid; as needed
     Route: 048
     Dates: start: 20120508

REACTIONS (7)
  - Pyelonephritis [Unknown]
  - Somnolence [Unknown]
  - Hyperbilirubinaemia [Unknown]
  - Escherichia urinary tract infection [Unknown]
  - Blood lactate dehydrogenase increased [Unknown]
  - Fall [Unknown]
  - Insomnia [Unknown]
